FAERS Safety Report 5486320-0 (Version None)
Quarter: 2007Q4

REPORT INFORMATION
  Report Type: 
  Country: None (occurrence: None)
  Receive Date: 20071016
  Receipt Date: 20071005
  Transmission Date: 20080405
  Serious: Yes (Hospitalization)
  Sender: FDA-Public Use
  Company Number: PHEH2007US06999

PATIENT
  Age: 60 Year
  Sex: Female

DRUGS (1)
  1. ZELNORM [Suspect]
     Indication: IRRITABLE BOWEL SYNDROME
     Dosage: UNK, UNK
     Route: 065
     Dates: end: 20070403

REACTIONS (6)
  - ASTHENIA [None]
  - CARDIAC DISORDER [None]
  - DYSPNOEA [None]
  - ELECTROCARDIOGRAM QT PROLONGED [None]
  - FATIGUE [None]
  - HYPERTENSION [None]
